FAERS Safety Report 5732958-2 (Version None)
Quarter: 2008Q2

REPORT INFORMATION
  Report Type: 
  Country: None (occurrence: None)
  Receive Date: 20080507
  Receipt Date: 20080507
  Transmission Date: 20081010
  Serious: Yes (Life-Threatening, Disabling)
  Sender: FDA-Public Use
  Company Number: None

PATIENT
  Age: 87 Year
  Sex: Female
  Weight: 74.8435 kg

DRUGS (1)
  1. DIGOXIN [Suspect]
     Indication: CARDIAC FAILURE CONGESTIVE
     Dosage: 0.125  1X PO
     Route: 048
     Dates: start: 20080401, end: 20080428

REACTIONS (15)
  - BLOOD GLUCOSE INCREASED [None]
  - COMMUNICATION DISORDER [None]
  - CYSTITIS [None]
  - DRUG TOXICITY [None]
  - GASTROINTESTINAL DISORDER [None]
  - LETHARGY [None]
  - MALAISE [None]
  - NAUSEA [None]
  - OVERDOSE [None]
  - OXYGEN SATURATION DECREASED [None]
  - PAIN [None]
  - PHARMACEUTICAL PRODUCT COMPLAINT [None]
  - PULMONARY CONGESTION [None]
  - VISUAL DISTURBANCE [None]
  - VOMITING [None]
